FAERS Safety Report 10427317 (Version 1)
Quarter: 2014Q3

REPORT INFORMATION
  Report Type: Spontaneous
  Country: US (occurrence: US)
  Receive Date: 20140903
  Receipt Date: 20140903
  Transmission Date: 20150326
  Serious: Yes (Hospitalization)
  Sender: FDA-Public Use
  Company Number: PHHY2014US110330

PATIENT
  Age: 25 Year
  Sex: Male

DRUGS (3)
  1. MIRTAZAPINE. [Suspect]
     Active Substance: MIRTAZAPINE
  2. VENLAFAXINE [Interacting]
     Active Substance: VENLAFAXINE HYDROCHLORIDE
  3. PHENIBUT [Interacting]
     Active Substance: DIETARY SUPPLEMENT
     Dosage: 1.5 G, BID

REACTIONS (7)
  - Loss of consciousness [Recovered/Resolved]
  - Sedation [Recovered/Resolved]
  - Hyporesponsive to stimuli [Recovered/Resolved]
  - Hypernatraemia [Recovered/Resolved]
  - Hyperchloraemia [Recovered/Resolved]
  - Drug interaction [Unknown]
  - Potentiating drug interaction [None]
